FAERS Safety Report 7209044-8 (Version None)
Quarter: 2011Q1

REPORT INFORMATION
  Report Type: 
  Country: None (occurrence: None)
  Receive Date: 20110104
  Receipt Date: 20101221
  Transmission Date: 20110831
  Serious: Yes (Hospitalization, Other)
  Sender: FDA-Public Use
  Company Number: US-CELGENEUS-163-21880-10110701

PATIENT
  Sex: Male

DRUGS (3)
  1. REVLIMID [Suspect]
     Indication: MULTIPLE MYELOMA
     Route: 048
     Dates: start: 20090301
  2. REVLIMID [Suspect]
     Route: 048
     Dates: start: 20101013, end: 20100101
  3. REVLIMID [Suspect]
     Route: 048
     Dates: start: 20101101

REACTIONS (4)
  - FATIGUE [None]
  - PULMONARY HAEMORRHAGE [None]
  - FALL [None]
  - DIZZINESS [None]
